FAERS Safety Report 14490931 (Version 1)
Quarter: 2018Q1

REPORT INFORMATION
  Report Type: Spontaneous
  Country: US (occurrence: US)
  Receive Date: 20180206
  Receipt Date: 20180206
  Transmission Date: 20180509
  Serious: No
  Sender: FDA-Public Use
  Company Number: US-PFIZER INC-2018047998

PATIENT
  Sex: Male

DRUGS (1)
  1. ADVIL PM [Suspect]
     Active Substance: DIPHENHYDRAMINE CITRATE\IBUPROFEN
     Dosage: TWO ADVIL PM PILLS FOR THE LAST TWO NIGHTS
     Dates: start: 20180129

REACTIONS (1)
  - Hyperhidrosis [Unknown]

NARRATIVE: CASE EVENT DATE: 201801
